FAERS Safety Report 7904469-7 (Version None)
Quarter: 2011Q4

REPORT INFORMATION
  Report Type: 
  Country: None (occurrence: None)
  Receive Date: 20111109
  Receipt Date: 20111028
  Transmission Date: 20120403
  Serious: No
  Sender: FDA-Public Use
  Company Number: US-BAYER-2011-105437

PATIENT
  Sex: Female

DRUGS (2)
  1. NATAZIA [Suspect]
     Dosage: UNK
  2. YAZ [Suspect]

REACTIONS (2)
  - ADVERSE EVENT [None]
  - MENSTRUATION DELAYED [None]
